FAERS Safety Report 8496743-3 (Version None)
Quarter: 2012Q3

REPORT INFORMATION
  Report Type: 
  Country: None (occurrence: None)
  Receive Date: 20120709
  Receipt Date: 20120703
  Transmission Date: 20120928
  Serious: Yes (Other)
  Sender: FDA-Public Use
  Company Number: US-TEVA-347140USA

PATIENT
  Age: 50 Year
  Sex: Female

DRUGS (8)
  1. REQUIP [Concomitant]
  2. PROVIGIL [Suspect]
     Indication: SLEEP APNOEA SYNDROME
     Dosage: 400 MILLIGRAM;
     Route: 048
     Dates: start: 20110101, end: 20110101
  3. PROVIGIL [Suspect]
     Indication: CIRCADIAN RHYTHM SLEEP DISORDER
  4. CALCIUM [Concomitant]
  5. GLUCOSAMINE [Concomitant]
  6. FISH OIL [Concomitant]
  7. VYVANSE [Concomitant]
  8. VITAMIN D [Concomitant]

REACTIONS (1)
  - CARDIAC DISORDER [None]
